FAERS Safety Report 7159421-9 (Version None)
Quarter: 2010Q4

REPORT INFORMATION
  Report Type: 
  Country: None (occurrence: None)
  Receive Date: 20101214
  Receipt Date: 20100901
  Transmission Date: 20110411
  Serious: No
  Sender: FDA-Public Use
  Company Number: US-ASTRAZENECA-2010SE41417

PATIENT
  Sex: Female

DRUGS (2)
  1. CRESTOR [Suspect]
     Route: 048
     Dates: start: 20090101
  2. WELLBUTRIN [Concomitant]
     Route: 048
     Dates: start: 20100601

REACTIONS (2)
  - ASPARTATE AMINOTRANSFERASE INCREASED [None]
  - LDL/HDL RATIO INCREASED [None]
